FAERS Safety Report 4848448-5 (Version None)
Quarter: 2005Q4

REPORT INFORMATION
  Report Type: 
  Country: None (occurrence: None)
  Receive Date: 20051208
  Receipt Date: 20051201
  Transmission Date: 20060501
  Serious: Yes (Other)
  Sender: FDA-Public Use
  Company Number: S2004BR02810

PATIENT
  Age: 31 Year
  Sex: Male
  Weight: 37.7 kg

DRUGS (2)
  1. AMOXICILLIN AND CLAVULANATE POTASSIUM [Suspect]
     Dosage: 875MG SEE DOSAGE TEXT
     Route: 048
     Dates: start: 20040728, end: 20040729
  2. TYLENOL [Concomitant]
     Dosage: 35DROP SEE DOSAGE TEXT
     Route: 048

REACTIONS (6)
  - BLOOD PRESSURE DECREASED [None]
  - CARDIAC FAILURE [None]
  - CONVULSION [None]
  - FALL [None]
  - FEELING ABNORMAL [None]
  - HYPERHIDROSIS [None]
